FAERS Safety Report 9692633 (Version 2)
Quarter: 2013Q4

REPORT INFORMATION
  Report Type: Report from Study
  Country: JP (occurrence: JP)
  Receive Date: 20131118
  Receipt Date: 20131126
  Transmission Date: 20140711
  Serious: Yes (Other)
  Sender: FDA-Public Use
  Company Number: PHHY2013JP130692

PATIENT
  Age: 31 Year
  Sex: Female

DRUGS (3)
  1. LEPONEX / CLOZARIL [Suspect]
     Indication: SCHIZOPHRENIA
     Route: 048
     Dates: start: 20130919
  2. OLANZAPINE [Concomitant]
     Dosage: UNK
  3. SEROQUEL [Concomitant]
     Dosage: UNK

REACTIONS (3)
  - Uterine leiomyoma [Not Recovered/Not Resolved]
  - Anaemia [Unknown]
  - Hallucination, auditory [Unknown]
